FAERS Safety Report 18634101 (Version 1)
Quarter: 2020Q4

REPORT INFORMATION
  Report Type: Report from Study
  Country: US (occurrence: US)
  Receive Date: 20201218
  Receipt Date: 20201218
  Transmission Date: 20210114
  Serious: No
  Sender: FDA-Public Use
  Company Number: US-REGENERON PHARMACEUTICALS, INC.-2020-19908

PATIENT

DRUGS (1)
  1. EYLEA [Suspect]
     Active Substance: AFLIBERCEPT
     Indication: INTRAOCULAR LENS IMPLANT
     Dosage: 2 MG/0.05ML SDV, LEFT EYE EVERY 4 TO 6 WEEKS
     Route: 031

REACTIONS (1)
  - Eye disorder [Unknown]
